FAERS Safety Report 24956525 (Version 1)
Quarter: 2025Q1

REPORT INFORMATION
  Report Type: Spontaneous
  Country: IT (occurrence: IT)
  Receive Date: 20250211
  Receipt Date: 20250211
  Transmission Date: 20250409
  Serious: Yes (Hospitalization, Other)
  Sender: AMGEN
  Company Number: IT-AMGEN-ITASP2025023063

PATIENT
  Age: 61 Year
  Sex: Male

DRUGS (7)
  1. ADALIMUMAB [Suspect]
     Active Substance: ADALIMUMAB
     Indication: Rheumatoid arthritis
     Route: 065
  2. PROLIA [Suspect]
     Active Substance: DENOSUMAB
     Indication: Osteoporosis
     Route: 065
  3. CORTICOSTEROID NOS [Concomitant]
     Active Substance: CORTICOSTEROID NOS
  4. HYDROXYCHLOROQUINE [Concomitant]
     Active Substance: HYDROXYCHLOROQUINE
  5. METHOTREXATE [Concomitant]
     Active Substance: METHOTREXATE
  6. LEFLUNOMIDE [Concomitant]
     Active Substance: LEFLUNOMIDE
  7. VITAMIN D [Concomitant]
     Active Substance: VITAMIN D NOS

REACTIONS (7)
  - Pneumonia [Unknown]
  - Mass excision [Unknown]
  - Drug tolerance decreased [Unknown]
  - Therapeutic product effect incomplete [Unknown]
  - Rheumatoid factor positive [Recovered/Resolved]
  - Anti-cyclic citrullinated peptide antibody positive [Unknown]
  - Synovitis [Recovered/Resolved]
